FAERS Safety Report 15221757 (Version 3)
Quarter: 2018Q4

REPORT INFORMATION
  Report Type: Spontaneous
  Country: DE (occurrence: DE)
  Receive Date: 20180731
  Receipt Date: 20181119
  Transmission Date: 20190204
  Serious: Yes (Life-Threatening, Hospitalization, Other)
  Sender: FDA-Public Use
  Company Number: DE-TEVA-2018-DE-934532

PATIENT
  Age: 75 Year
  Sex: Male
  Weight: 80 kg

DRUGS (7)
  1. VALSARTAN 160 MG 1A [Suspect]
     Active Substance: VALSARTAN
     Indication: HYPERTENSION
     Dates: start: 20100101, end: 20180715
  2. CANDESARTAN 16 MG [Concomitant]
     Active Substance: CANDESARTAN
     Dosage: 1-0-0
  3. PROPAFENON 150 MG [Concomitant]
     Dosage: 1-1-1
  4. ELIQUIS [Concomitant]
     Active Substance: APIXABAN
     Dosage: 1-0-1
  5. VALSARTAN ABZ 160 MG FILMTABLETTEN [Suspect]
     Active Substance: VALSARTAN
     Indication: HYPERTENSION
     Route: 048
     Dates: start: 20100101, end: 20180715
  6. TAMSULOSIN [Concomitant]
     Active Substance: TAMSULOSIN
     Dosage: 1-0-0
  7. METOPROLOL 25 MG [Concomitant]
     Active Substance: METOPROLOL
     Dosage: 1-0-0

REACTIONS (2)
  - Neuroendocrine tumour of the lung [Unknown]
  - Bronchitis [Unknown]

NARRATIVE: CASE EVENT DATE: 201803
